FAERS Safety Report 9846509 (Version 2)
Quarter: 2014Q1

REPORT INFORMATION
  Report Type: Spontaneous
  Country: GB (occurrence: None)
  Receive Date: 20140117
  Receipt Date: 20140122
  Transmission Date: 20141002
  Serious: Yes (Hospitalization)
  Sender: FDA-Public Use
  Company Number: AUR-APL-2014-00322

PATIENT
  Age: 74 Year
  Sex: Male

DRUGS (7)
  1. AMLODIPINE (AMLODIPINE) [Suspect]
     Indication: PRODUCT USED FOR UNKNOWN INDICATION
     Route: 048
  2. PIOGLITAZONE (PIOGLITAZONE) [Suspect]
     Indication: PRODUCT USED FOR UNKNOWN INDICATION
     Route: 048
  3. ASPIRIN (ACETYLSALICYLIC ACID) [Concomitant]
  4. ATORVASTATIN (ATORVASTATIN) [Concomitant]
  5. BIMATOPROST (BIMATOPROST) [Concomitant]
  6. METFORMIN (METFORMIN) [Concomitant]
  7. TAMSULOSIN (TAMSULOSIN) [Concomitant]

REACTIONS (6)
  - Cardiac failure congestive [None]
  - Aortic stenosis [None]
  - Fluid overload [None]
  - Hyponatraemia [None]
  - Oedema peripheral [None]
  - Pleural effusion [None]
